FAERS Safety Report 9504795 (Version 1)
Quarter: 2013Q1

REPORT INFORMATION
  Report Type: Spontaneous
  Country: US (occurrence: None)
  Receive Date: 20130225
  Receipt Date: 20130225
  Transmission Date: 20140127
  Serious: Yes (Other)
  Sender: FDA-Public Use
  Company Number: 2010-376

PATIENT
  Age: 59 Year
  Sex: Male

DRUGS (2)
  1. PRIALT (ZICONOTIDE) INTRATHECAL INFUSION [Suspect]
     Indication: PAIN IN EXTREMITY
     Route: 037
     Dates: start: 20101108
  2. BACLOFEN [Suspect]
     Indication: PAIN IN EXTREMITY
     Route: 037

REACTIONS (16)
  - Fall [None]
  - Restless legs syndrome [None]
  - Sensory disturbance [None]
  - Renal impairment [None]
  - Blood pressure abnormal [None]
  - Pain in extremity [None]
  - Disorientation [None]
  - Nausea [None]
  - Muscle spasms [None]
  - Hypoaesthesia [None]
  - Insomnia [None]
  - Anxiety [None]
  - Burning sensation [None]
  - Decreased appetite [None]
  - Speech disorder [None]
  - Dizziness [None]
